FAERS Safety Report 7231684-0 (Version None)
Quarter: 2011Q1

REPORT INFORMATION
  Report Type: 
  Country: None (occurrence: None)
  Receive Date: 20110118
  Receipt Date: 20110104
  Transmission Date: 20110831
  Serious: No
  Sender: FDA-Public Use
  Company Number: US-B.I. PHARMACEUTICALS,INC./RIDGEFIELD-2011-BP-00579BP

PATIENT
  Sex: Male

DRUGS (18)
  1. ZOMETA [Concomitant]
     Indication: OSTEOPOROSIS
     Route: 042
  2. GELNIQUE [Concomitant]
     Indication: URINARY INCONTINENCE
     Route: 061
  3. ASA [Concomitant]
     Indication: PROPHYLAXIS
     Dosage: 81 MG
     Route: 048
  4. AMBIEN [Concomitant]
     Indication: PROSTATE CANCER
     Dosage: 10 MG
     Route: 048
  5. AMBIEN [Concomitant]
     Indication: BONE NEOPLASM MALIGNANT
  6. AMLODIPINE [Concomitant]
     Indication: HYPERTENSION
     Dosage: 7.5 MG
     Route: 048
  7. HYDROCHLOROTHIAZIDE [Concomitant]
     Indication: HYPERTENSION
     Dosage: 25 MG
     Route: 048
  8. MICARDIS [Concomitant]
     Indication: HYPERTENSION
     Dosage: 80 MG
     Route: 048
  9. KETOCONAZOLE [Concomitant]
     Indication: BONE NEOPLASM MALIGNANT
  10. VITAMIN D [Concomitant]
     Indication: PROPHYLAXIS
     Dosage: 1000 MG
     Route: 048
  11. LORAZEPAM [Concomitant]
     Indication: ANXIETY
     Dosage: 1 MG
     Route: 048
  12. METOPROLOL [Concomitant]
     Indication: ATRIAL FIBRILLATION
     Dosage: 25 MG
     Route: 048
  13. PRADAXA [Suspect]
     Indication: ATRIAL FIBRILLATION
     Dosage: 300 MG
     Route: 048
     Dates: start: 20101228
  14. HYDROCORTONE [Concomitant]
     Indication: PROSTATE CANCER
     Dosage: 30 MG
     Route: 048
  15. HYDROCORTONE [Concomitant]
     Indication: BONE NEOPLASM MALIGNANT
  16. DEXAPHENADRINE [Concomitant]
     Indication: HYPERSENSITIVITY
     Dosage: 180 MG
     Route: 048
  17. TRICOR [Concomitant]
     Indication: HYPERTRIGLYCERIDAEMIA
     Dosage: 145 MG
     Route: 048
  18. KETOCONAZOLE [Concomitant]
     Indication: PROSTATE CANCER
     Dosage: 600 MG
     Route: 048

REACTIONS (1)
  - VERTIGO [None]
